FAERS Safety Report 8401362-0 (Version None)
Quarter: 2012Q2

REPORT INFORMATION
  Report Type: 
  Country: None (occurrence: None)
  Receive Date: 20120601
  Receipt Date: 20120522
  Transmission Date: 20120825
  Serious: Yes (Disabling, Other)
  Sender: FDA-Public Use
  Company Number: US-CELGENEUS-163-21880-12043091

PATIENT
  Sex: Male
  Weight: 77.634 kg

DRUGS (13)
  1. FUROSEMIDE [Concomitant]
     Dosage: 20 MILLIGRAM
     Route: 048
     Dates: start: 20111123
  2. MULTIPLE VITAMINS-MINERALS [Concomitant]
     Route: 048
  3. FOLIC ACID [Concomitant]
     Dosage: 1 MILLIGRAM
     Route: 048
     Dates: start: 20110504
  4. TERAZOSIN HCL [Concomitant]
     Dosage: 1 MILLIGRAM
     Route: 048
  5. CYANOCOBALAMIN [Concomitant]
     Dosage: 100 MICROGRAM
     Route: 048
  6. REVLIMID [Suspect]
     Dosage: 10 MILLIGRAM
     Route: 048
     Dates: start: 20120425
  7. PANTOPRAZOLE [Concomitant]
     Indication: GASTROINTESTINAL DISORDER
     Dosage: 40 MILLIGRAM
     Route: 048
  8. REVLIMID [Suspect]
     Indication: MULTIPLE MYELOMA
     Dosage: 5 MILLIGRAM
     Route: 048
     Dates: start: 20120101, end: 20120425
  9. DECADRON [Concomitant]
     Dosage: 8 MILLIGRAM
     Route: 048
  10. WARFARIN [Concomitant]
     Dosage: 5 MILLIGRAM
     Route: 048
  11. SIMVASTATIN [Concomitant]
     Dosage: 40 MILLIGRAM
     Route: 048
  12. HYDROCODONE BITARTRATE + ACETAMINOPHEN [Concomitant]
     Dosage: 5-500MG
     Route: 048
     Dates: start: 20100702
  13. CARVEDILOL [Concomitant]
     Dosage: 3.125 MILLIGRAM
     Route: 048

REACTIONS (2)
  - MULTIPLE MYELOMA [None]
  - DIABETES MELLITUS [None]
